FAERS Safety Report 19297431 (Version 1)
Quarter: 2021Q2

REPORT INFORMATION
  Report Type: Report from Study
  Country: None (occurrence: ZA)
  Receive Date: 20210524
  Receipt Date: 20210524
  Transmission Date: 20210717
  Serious: Yes (Hospitalization)
  Sender: FDA-Public Use
  Company Number: ZA-ABBVIE-21K-143-3912746-00

PATIENT
  Sex: Female

DRUGS (13)
  1. THADEN 25 MG [Concomitant]
     Indication: BIPOLAR DISORDER
  2. VERAHEXAL 240 SR [Concomitant]
     Active Substance: VERAPAMIL HYDROCHLORIDE
     Indication: HYPERTENSION
  3. ARCOXIA [Concomitant]
     Active Substance: ETORICOXIB
     Indication: ANKYLOSING SPONDYLITIS
  4. DEGRANOL 200 MG [Concomitant]
     Indication: EPILEPSY
  5. ESTROFEM 2MG [Concomitant]
     Indication: PRODUCT USED FOR UNKNOWN INDICATION
  6. HUMIRA [Suspect]
     Active Substance: ADALIMUMAB
     Indication: ANKYLOSING SPONDYLITIS
     Route: 058
     Dates: start: 20200812
  7. HUMIRA [Suspect]
     Active Substance: ADALIMUMAB
     Indication: COLITIS ULCERATIVE
  8. CARBILEV 25/250 [Concomitant]
     Indication: PARKINSON^S DISEASE
  9. DILATREND [Concomitant]
     Active Substance: CARVEDILOL
     Indication: HYPERTENSION
  10. SALAZOPYRIN?EN 500MG [Concomitant]
     Indication: ANKYLOSING SPONDYLITIS
  11. EGLONYL 50 MG [Concomitant]
     Indication: BIPOLAR DISORDER
  12. EPILIZINE [Concomitant]
     Active Substance: VALPROATE SODIUM
     Indication: BIPOLAR DISORDER
  13. TREPILINE 10 MG [Concomitant]
     Indication: BIPOLAR DISORDER

REACTIONS (1)
  - Colitis [Recovering/Resolving]

NARRATIVE: CASE EVENT DATE: 202105
